FAERS Safety Report 4757518-1 (Version None)
Quarter: 2005Q3

REPORT INFORMATION
  Report Type: 
  Country: None (occurrence: None)
  Receive Date: 20050831
  Receipt Date: 20050520
  Transmission Date: 20060218
  Serious: Yes (Hospitalization, Disabling)
  Sender: FDA-Public Use
  Company Number: US-MERCK-0505USA02698

PATIENT
  Age: 48 Year
  Sex: Female
  Weight: 114 kg

DRUGS (5)
  1. VIOXX [Suspect]
     Indication: ARTHRITIS
     Route: 048
     Dates: start: 20000201, end: 20040901
  2. VIOXX [Suspect]
     Route: 048
     Dates: start: 20000201, end: 20040901
  3. IMITREX [Concomitant]
     Route: 065
     Dates: start: 19940101
  4. HYDROCHLOROTHIAZIDE [Concomitant]
     Route: 065
     Dates: start: 19990101
  5. ATENOLOL [Concomitant]
     Route: 065
     Dates: start: 19990101

REACTIONS (3)
  - ADVERSE EVENT [None]
  - BACK DISORDER [None]
  - DEEP VEIN THROMBOSIS [None]
